FAERS Safety Report 5341684-3 (Version None)
Quarter: 2007Q2

REPORT INFORMATION
  Report Type: 
  Country: None (occurrence: None)
  Receive Date: 20070530
  Receipt Date: 20070518
  Transmission Date: 20071010
  Serious: Yes (Other)
  Sender: FDA-Public Use
  Company Number: 2007AL002089

PATIENT
  Age: 64 Year
  Sex: Male

DRUGS (12)
  1. MIRTAZAPINE [Suspect]
     Indication: DEPRESSION
     Dosage: 45 MG; QD; PO
     Route: 048
     Dates: start: 20060503, end: 20061130
  2. RAMIPRIL [Concomitant]
  3. OMEPRAZOLE [Concomitant]
  4. FUROSEMIDE [Concomitant]
  5. DOXAZOSIN MESYLATE [Concomitant]
  6. ATENOLOL [Concomitant]
  7. ADALAT CC [Concomitant]
  8. ALLOPURINOL [Concomitant]
  9. ATORVASTATIN CALCIUM [Concomitant]
  10. CLOPIDOGREL [Concomitant]
  11. IRBESARTAN [Concomitant]
  12. GLICLAZIDE [Concomitant]

REACTIONS (1)
  - BLOOD GLUCOSE FLUCTUATION [None]
